FAERS Safety Report 6030858-4 (Version None)
Quarter: 2009Q1

REPORT INFORMATION
  Report Type: 
  Country: None (occurrence: None)
  Receive Date: 20090106
  Receipt Date: 20081224
  Transmission Date: 20090719
  Serious: Yes (Death, Hospitalization)
  Sender: FDA-Public Use
  Company Number: 2008SP012020

PATIENT
  Age: 59 Year
  Sex: Female

DRUGS (10)
  1. TEMODAR [Suspect]
     Indication: GLIOBLASTOMA MULTIFORME
     Dates: start: 20080319, end: 20080501
  2. VITAMIN K [Concomitant]
  3. IMIPENEM [Concomitant]
  4. VANCOMYCIN HYDROCHLORIDE [Concomitant]
  5. NEUPOGEN [Concomitant]
  6. DECADRON [Concomitant]
  7. PROTONIX [Concomitant]
  8. INSULIN [Concomitant]
  9. ALBUTEROL [Concomitant]
  10. ATROVENT [Concomitant]

REACTIONS (9)
  - BACTEROIDES INFECTION [None]
  - BLOOD CULTURE POSITIVE [None]
  - BONE MARROW FAILURE [None]
  - CANDIDIASIS [None]
  - ESCHERICHIA INFECTION [None]
  - FEBRILE NEUTROPENIA [None]
  - PLATELET COUNT DECREASED [None]
  - STAPHYLOCOCCAL INFECTION [None]
  - WHITE BLOOD CELL COUNT DECREASED [None]
